FAERS Safety Report 9456094 (Version 2)
Quarter: 2013Q3

REPORT INFORMATION
  Report Type: Report from Study
  Country: US (occurrence: US)
  Receive Date: 20130813
  Receipt Date: 20130815
  Transmission Date: 20140515
  Serious: Yes (Hospitalization)
  Sender: FDA-Public Use
  Company Number: US-ACTELION-A-NJ2013-84030

PATIENT
  Age: 68 Year
  Sex: Female

DRUGS (10)
  1. TRACLEER [Suspect]
     Indication: PULMONARY ARTERIAL HYPERTENSION
     Dosage: 125 MG, UNK
     Route: 048
     Dates: start: 200810
  2. TRACLEER [Suspect]
     Dosage: UNK
     Route: 048
     Dates: start: 200810
  3. VENTAVIS [Suspect]
     Indication: PULMONARY ARTERIAL HYPERTENSION
     Dosage: 6/DAY
     Route: 055
     Dates: start: 2010
  4. NEXIUM [Concomitant]
     Dosage: 40 MG, BID
     Dates: start: 2008
  5. SYNTHROID [Concomitant]
     Dosage: .088 MG, UNK
  6. POTASSIUM CITRATE [Concomitant]
     Dosage: 540 MG, BID
     Dates: start: 2008
  7. METOPROLOL [Concomitant]
     Dosage: 50 MG, QD
     Dates: start: 2008
  8. TRAMADOL [Concomitant]
     Dosage: 37.5 MG, QID
     Dates: start: 2008
  9. PRAZOSIN [Concomitant]
     Dosage: 1 MG, QD
     Dates: start: 2008
  10. MINOCYCLINE [Concomitant]
     Dosage: 100 MG, QD
     Dates: start: 2013

REACTIONS (4)
  - Localised infection [Recovered/Resolved]
  - Lymphoedema [Recovered/Resolved]
  - Knee arthroplasty [Recovered/Resolved]
  - Gastroenteritis bacterial [Not Recovered/Not Resolved]
